FAERS Safety Report 9860287 (Version 1)
Quarter: 2014Q1

REPORT INFORMATION
  Report Type: Spontaneous
  Country: US (occurrence: US)
  Receive Date: 20140201
  Receipt Date: 20140201
  Transmission Date: 20141002
  Serious: No
  Sender: FDA-Public Use
  Company Number: US-B.I. PHARMACEUTICALS,INC./RIDGEFIELD-2014-BI-03522BP

PATIENT
  Sex: Female
  Weight: 82 kg

DRUGS (1)
  1. PRADAXA [Suspect]
     Indication: HYPERCOAGULATION
     Dosage: 300 MG
     Route: 048
     Dates: start: 2011

REACTIONS (2)
  - Dermal cyst [Not Recovered/Not Resolved]
  - Off label use [Not Recovered/Not Resolved]
